FAERS Safety Report 22107015 (Version 1)
Quarter: 2023Q1

REPORT INFORMATION
  Report Type: Spontaneous
  Country: US (occurrence: US)
  Receive Date: 20230317
  Receipt Date: 20230317
  Transmission Date: 20230417
  Serious: No
  Sender: FDA-Public Use
  Company Number: US-SA-SAC20230314000638

PATIENT
  Sex: Male
  Weight: 95.23 kg

DRUGS (5)
  1. DUPIXENT [Suspect]
     Active Substance: DUPILUMAB
     Indication: Nasal polyps
     Dosage: 300 MG, QOW
     Route: 058
  2. ALBUTEROL SULFATE [Concomitant]
     Active Substance: ALBUTEROL SULFATE
  3. XHANCE [Concomitant]
     Active Substance: FLUTICASONE PROPIONATE
  4. BENADRYL ALLERGY [Concomitant]
     Active Substance: DIPHENHYDRAMINE HYDROCHLORIDE
  5. VITAMINS NOS [Concomitant]
     Active Substance: VITAMINS

REACTIONS (1)
  - Hypersensitivity [Unknown]
